FAERS Safety Report 23983528 (Version 1)
Quarter: 2024Q2

REPORT INFORMATION
  Report Type: Spontaneous
  Country: JP (occurrence: JP)
  Receive Date: 20240617
  Receipt Date: 20240617
  Transmission Date: 20240716
  Serious: Yes (Other)
  Sender: FDA-Public Use
  Company Number: JP-BRISTOL-MYERS SQUIBB COMPANY-2024-094686

PATIENT
  Age: 8 Decade
  Sex: Female

DRUGS (1)
  1. ISTODAX [Suspect]
     Active Substance: ROMIDEPSIN
     Indication: Peripheral T-cell lymphoma unspecified
     Dosage: DOSE : 14MG/M2;     FREQ : ONCE PER MONTH
     Route: 041
     Dates: start: 20240604

REACTIONS (1)
  - Vasculitis [Recovering/Resolving]
